FAERS Safety Report 11350254 (Version 3)
Quarter: 2015Q4

REPORT INFORMATION
  Report Type: Report from Study
  Country: JP (occurrence: JP)
  Receive Date: 20150807
  Receipt Date: 20151026
  Transmission Date: 20160304
  Serious: Yes (Hospitalization)
  Sender: FDA-Public Use
  Company Number: JP-PFIZER INC-2015250112

PATIENT
  Age: 73 Year
  Sex: Male
  Weight: 60 kg

DRUGS (22)
  1. PLAVIX [Concomitant]
     Active Substance: CLOPIDOGREL BISULFATE
     Dosage: 25 MG, 2X/DAY
     Route: 048
  2. XALKORI [Suspect]
     Active Substance: CRIZOTINIB
     Indication: NON-SMALL CELL LUNG CANCER
     Dosage: 250 MG, 2X/DAY
     Route: 048
     Dates: start: 20140925, end: 20141130
  3. AVOLVE [Concomitant]
     Active Substance: DUTASTERIDE
     Dosage: 0.5 MG, 1X/DAY
     Route: 048
  4. LAC B [Concomitant]
     Active Substance: BIFIDOBACTERIUM SPP.
     Dosage: 1 G, 3X/DAY
     Route: 048
     Dates: start: 20140930, end: 20141002
  5. CRAVIT [Concomitant]
     Active Substance: LEVOFLOXACIN
     Indication: URINARY TRACT INFECTION
     Dosage: 500 MG, 1X/DAY
     Route: 048
     Dates: start: 20141020, end: 20141020
  6. AMOBAN [Concomitant]
     Active Substance: ZOPICLONE
     Dosage: 7.5 MG, AS NEEDED
     Route: 048
     Dates: start: 20141021
  7. URIEF [Concomitant]
     Active Substance: SILODOSIN
     Dosage: 4 MG, 2X/DAY
     Route: 048
  8. FUROSEMIDE. [Concomitant]
     Active Substance: FUROSEMIDE
     Dosage: 20 MG, 1X/DAY
     Route: 048
  9. LANSOPRAZOLE. [Concomitant]
     Active Substance: LANSOPRAZOLE
     Dosage: 15 MG, 1X/DAY
     Route: 048
  10. JANUVIA [Concomitant]
     Active Substance: SITAGLIPTIN PHOSPHATE
     Dosage: 50 MG, 1X/DAY
     Route: 048
  11. PRIMPERAN [Concomitant]
     Active Substance: METOCLOPRAMIDE HYDROCHLORIDE
     Dosage: 5 MG, 3X/DAY
     Route: 048
     Dates: start: 20140925
  12. BETANIS [Concomitant]
     Active Substance: MIRABEGRON
     Dosage: 50 MG, 1X/DAY
     Route: 048
     Dates: end: 20141020
  13. UBRETID [Concomitant]
     Active Substance: DISTIGMINE BROMIDE
     Indication: URINARY TRACT INFECTION
     Dosage: 5 MG, 1X/DAY
     Route: 048
     Dates: start: 20141021
  14. ASPIRIN. [Concomitant]
     Active Substance: ASPIRIN
     Dosage: 100 MG, 1X/DAY
     Route: 048
  15. MICARDIS [Concomitant]
     Active Substance: TELMISARTAN
     Dosage: 40 MG, 1X/DAY
     Route: 048
  16. CRAVIT [Concomitant]
     Active Substance: LEVOFLOXACIN
     Dosage: 500 MG, 1X/DAY
     Route: 048
     Dates: start: 20141118, end: 20141122
  17. LYRICA [Concomitant]
     Active Substance: PREGABALIN
     Dosage: 75 MG, 2X/DAY
     Route: 048
  18. CRESTOR [Concomitant]
     Active Substance: ROSUVASTATIN CALCIUM
     Dosage: 2.5 MG, 1X/DAY
     Route: 048
  19. LOXOPROFEN [Concomitant]
     Active Substance: LOXOPROFEN
     Indication: URINARY TRACT INFECTION
     Dosage: 60 MG, AS NEEDED
     Route: 048
     Dates: start: 20141020
  20. SENNOSIDE [Concomitant]
     Active Substance: SENNOSIDES
     Dosage: 12 MG, AS NEEDED
     Route: 048
     Dates: start: 20141104
  21. AMLODIPINE [Concomitant]
     Active Substance: AMLODIPINE BESYLATE
     Dosage: 5 MG, 1X/DAY
     Route: 048
  22. NASEA [Concomitant]
     Active Substance: RAMOSETRON HYDROCHLORIDE
     Dosage: 0.1 MG, 1X/DAY
     Route: 048
     Dates: start: 20140930, end: 20141004

REACTIONS (1)
  - Oesophagitis [Recovered/Resolved]

NARRATIVE: CASE EVENT DATE: 20141124
